FAERS Safety Report 11316710 (Version 17)
Quarter: 2017Q2

REPORT INFORMATION
  Report Type: Spontaneous
  Country: US (occurrence: US)
  Receive Date: 20150728
  Receipt Date: 20170420
  Transmission Date: 20170829
  Serious: Yes (Other)
  Sender: FDA-Public Use
  Company Number: US-PFIZER INC-2015241997

PATIENT
  Age: 85 Year
  Sex: Female
  Weight: 81.63 kg

DRUGS (14)
  1. IBRANCE [Suspect]
     Active Substance: PALBOCICLIB
     Dosage: 125 MG, CYCLIC (1 CAP DAILY D1-D21 Q28 D)
     Route: 048
  2. IBRANCE [Suspect]
     Active Substance: PALBOCICLIB
     Dosage: 125 MG, CYCLIC (1D-21D Q28D)
     Route: 048
  3. IBRANCE [Suspect]
     Active Substance: PALBOCICLIB
     Dosage: 125 MG, CYCLIC (DAYS 1-21 Q 28 DAYS)
     Route: 048
  4. IBRANCE [Suspect]
     Active Substance: PALBOCICLIB
     Dosage: 125 MG, CYCLIC [1D-21D Q 28 D]
     Route: 048
  5. IBRANCE [Suspect]
     Active Substance: PALBOCICLIB
     Dosage: 125 MG, CYCLIC (1 CAP DAILY D1-D21 Q28 D)
     Route: 048
  6. IBRANCE [Suspect]
     Active Substance: PALBOCICLIB
     Dosage: 125 MG, CYCLIC (DAYS 1-21 Q28 DAYS)
     Route: 048
  7. IBRANCE [Suspect]
     Active Substance: PALBOCICLIB
     Dosage: 125 MG, CYCLIC (DAYS 1 -21 Q28 DAYS)
     Route: 048
  8. IBRANCE [Suspect]
     Active Substance: PALBOCICLIB
     Dosage: 125 MG, CYCLIC [D 1-21Q 28 DAYS]
     Route: 048
  9. LETROZOLE. [Concomitant]
     Active Substance: LETROZOLE
     Indication: BREAST CANCER METASTATIC
     Dosage: 2.5 MG, DAILY
     Route: 048
     Dates: start: 201506
  10. IBRANCE [Suspect]
     Active Substance: PALBOCICLIB
     Dosage: 125 MG, CYCLIC (1 CAP DAILY D1-D21 Q28 D)
     Route: 048
  11. IBRANCE [Suspect]
     Active Substance: PALBOCICLIB
     Dosage: 125 MG, CYCLIC (D 1-21 Q 28 DAYS)
     Route: 048
  12. IBRANCE [Suspect]
     Active Substance: PALBOCICLIB
     Indication: BREAST CANCER METASTATIC
     Dosage: 125 MG, CYCLIC (1 CAP DAILY D1-D21 Q28 D)
     Route: 048
     Dates: start: 20150609
  13. IBRANCE [Suspect]
     Active Substance: PALBOCICLIB
     Dosage: 125 MG, CYCLIC (1D-21D Q28D)
     Route: 048
     Dates: start: 20160505
  14. IBRANCE [Suspect]
     Active Substance: PALBOCICLIB
     Dosage: 125 MG, CYCLIC (DAYS 1-21 Q 28 DAYS)
     Route: 048

REACTIONS (36)
  - Angina pectoris [Unknown]
  - Food intolerance [Unknown]
  - Myalgia [Unknown]
  - Feeling hot [Unknown]
  - Fatigue [Unknown]
  - Pain [Unknown]
  - Drug dose omission [Unknown]
  - Hunger [Unknown]
  - Gastrooesophageal reflux disease [Unknown]
  - Diarrhoea [Unknown]
  - Nausea [Unknown]
  - Dyspnoea [Unknown]
  - Headache [Unknown]
  - Constipation [Recovering/Resolving]
  - Cough [Not Recovered/Not Resolved]
  - Abdominal distension [Unknown]
  - Fungal infection [Unknown]
  - Viral upper respiratory tract infection [Not Recovered/Not Resolved]
  - Condition aggravated [Unknown]
  - Arthralgia [Unknown]
  - Urine odour abnormal [Unknown]
  - Weight increased [Unknown]
  - Pruritus [Unknown]
  - Limb discomfort [Unknown]
  - Productive cough [Not Recovered/Not Resolved]
  - Vomiting [Unknown]
  - Arthritis [Unknown]
  - Rash [Unknown]
  - Pain in extremity [Unknown]
  - Bladder disorder [Not Recovered/Not Resolved]
  - Anal incontinence [Unknown]
  - Memory impairment [Unknown]
  - Epistaxis [Recovering/Resolving]
  - Tumour marker increased [Unknown]
  - Blister [Unknown]
  - Muscular weakness [Unknown]

NARRATIVE: CASE EVENT DATE: 20150717
